FAERS Safety Report 14467292 (Version 1)
Quarter: 2018Q1

REPORT INFORMATION
  Report Type: Spontaneous
  Country: FR (occurrence: FR)
  Receive Date: 20180131
  Receipt Date: 20180131
  Transmission Date: 20180509
  Serious: Yes (Hospitalization)
  Sender: FDA-Public Use
  Company Number: FR-LPDUSPRD-20180060

PATIENT
  Age: 77 Year
  Sex: Female
  Weight: 85 kg

DRUGS (5)
  1. CORDARONE [Concomitant]
     Active Substance: AMIODARONE HYDROCHLORIDE
     Dosage: 200 MG QD
     Route: 048
     Dates: end: 20171208
  2. ELIQUIS [Concomitant]
     Active Substance: APIXABAN
     Dosage: 5 MG QD
     Route: 048
     Dates: end: 20171208
  3. COVERSYL [Concomitant]
     Active Substance: PERINDOPRIL
     Dosage: 2 MG (1 D)
     Route: 048
     Dates: end: 20171208
  4. FUROSEMIDE. [Concomitant]
     Active Substance: FUROSEMIDE
     Dosage: 20 MG (1 D)
     Route: 048
  5. VENOFER [Suspect]
     Active Substance: IRON SUCROSE
     Dosage: 1000 MG (1 TOTAL)
     Route: 042
     Dates: start: 20171211, end: 20171211

REACTIONS (4)
  - Malaise [Recovered/Resolved]
  - Hypotension [Recovered/Resolved]
  - Incorrect dose administered [Unknown]
  - Accidental overdose [Unknown]

NARRATIVE: CASE EVENT DATE: 20171211
